FAERS Safety Report 4974637-5 (Version None)
Quarter: 2006Q2

REPORT INFORMATION
  Report Type: 
  Country: None (occurrence: None)
  Receive Date: 20060417
  Receipt Date: 20051212
  Transmission Date: 20061013
  Serious: Yes (Hospitalization, Disabling)
  Sender: FDA-Public Use
  Company Number: US-MERCK-0512USA02161

PATIENT
  Age: 73 Year
  Sex: Female
  Weight: 73 kg

DRUGS (1)
  1. VIOXX [Suspect]
     Indication: ARTHRITIS
     Route: 048
     Dates: start: 20020211, end: 20040906

REACTIONS (8)
  - ASTHENIA [None]
  - CARDIAC PACEMAKER INSERTION [None]
  - DEEP VEIN THROMBOSIS [None]
  - DIZZINESS [None]
  - GOUT [None]
  - MYOCARDIAL INFARCTION [None]
  - PAIN [None]
  - QUADRUPLE VESSEL BYPASS GRAFT [None]
